FAERS Safety Report 4682016-3 (Version None)
Quarter: 2005Q2

REPORT INFORMATION
  Report Type: 
  Country: None (occurrence: None)
  Receive Date: 20050606
  Receipt Date: 20050525
  Transmission Date: 20051028
  Serious: Yes (Hospitalization)
  Sender: FDA-Public Use
  Company Number: JP-JNJFOC-20050307617

PATIENT
  Sex: Female
  Weight: 52.5 kg

DRUGS (13)
  1. REMICADE [Suspect]
     Route: 042
  2. REMICADE [Suspect]
     Route: 042
  3. REMICADE [Suspect]
     Indication: RHEUMATOID ARTHRITIS
     Route: 042
  4. METHOTREXATE [Concomitant]
  5. PREDONISOLONE [Concomitant]
     Route: 049
  6. AZULFIDINE EN-TABS [Concomitant]
     Route: 049
  7. RHEUMATREX [Concomitant]
     Route: 049
  8. RHEUMATREX [Concomitant]
     Route: 049
  9. LOXONINE [Concomitant]
     Route: 049
  10. LEUCOVORIN CALCIUM [Concomitant]
     Route: 049
  11. TAKEPRON [Concomitant]
     Route: 049
  12. ISCOTIN [Concomitant]
     Route: 049
  13. EFTORON [Concomitant]
     Route: 049

REACTIONS (3)
  - COLON CANCER [None]
  - COLORECTAL CANCER [None]
  - HAEMATOCHEZIA [None]
